FAERS Safety Report 7906366-X (Version None)
Quarter: 2011Q4

REPORT INFORMATION
  Report Type: 
  Country: None (occurrence: None)
  Receive Date: 20111110
  Receipt Date: 20111107
  Transmission Date: 20120403
  Serious: Yes (Death)
  Sender: FDA-Public Use
  Company Number: JP-ASTRAZENECA-2011SE66611

PATIENT
  Age: 26236 Day
  Sex: Male

DRUGS (31)
  1. ATROPINE [Concomitant]
     Indication: PERCUTANEOUS CORONARY INTERVENTION
     Route: 042
     Dates: start: 20111101, end: 20111101
  2. NOR-ADRENALIN [Concomitant]
     Dosage: 1 A DAILY
     Route: 042
     Dates: start: 20111102, end: 20111102
  3. LASIX [Concomitant]
     Indication: MYOCARDIAL INFARCTION
     Dosage: 1 A DAILY
     Route: 042
     Dates: start: 20111102, end: 20111102
  4. ASPIRIN [Suspect]
     Indication: ACUTE CORONARY SYNDROME
     Route: 048
     Dates: start: 20111101, end: 20111101
  5. SOLYUGEN F [Concomitant]
     Route: 042
     Dates: start: 20111102, end: 20111102
  6. DOPAMINE HCL [Concomitant]
     Route: 042
     Dates: start: 20111102, end: 20111102
  7. DOPAMINE HCL [Concomitant]
     Route: 042
     Dates: start: 20111103, end: 20111103
  8. PREDNISOLONE [Concomitant]
     Indication: RHEUMATOID ARTHRITIS
     Route: 048
     Dates: start: 20111031, end: 20111103
  9. LASIX [Concomitant]
     Dosage: 0.5  A DAILY
     Route: 042
     Dates: start: 20111102, end: 20111102
  10. SOLYUGEN F [Concomitant]
     Route: 042
     Dates: start: 20111103, end: 20111103
  11. ISOSORBIDE DINITRATE [Concomitant]
     Indication: PERCUTANEOUS CORONARY INTERVENTION
     Route: 042
     Dates: start: 20111101, end: 20111101
  12. PLAVIX [Suspect]
     Indication: ACUTE CORONARY SYNDROME
     Route: 048
     Dates: start: 20111101
  13. ASPIRIN [Suspect]
     Route: 048
     Dates: start: 20111102, end: 20111102
  14. NOR-ADRENALIN [Concomitant]
     Route: 042
     Dates: start: 20111103, end: 20111103
  15. FOLIC ACID [Concomitant]
     Indication: PROPHYLAXIS
     Route: 048
     Dates: start: 20111028, end: 20111103
  16. LOXONIN [Concomitant]
     Indication: RHEUMATOID ARTHRITIS
     Route: 048
     Dates: start: 20111028, end: 20111031
  17. HEPARIN [Concomitant]
     Route: 013
     Dates: start: 20111101, end: 20111101
  18. NOR-ADRENALIN [Concomitant]
     Indication: PERCUTANEOUS CORONARY INTERVENTION
     Route: 042
     Dates: start: 20111101, end: 20111101
  19. LANSOPRAZOLE [Concomitant]
     Indication: PROPHYLAXIS AGAINST GASTROINTESTINAL ULCER
     Route: 048
     Dates: start: 20111102, end: 20111103
  20. LIVALO [Concomitant]
     Indication: HYPERCHOLESTEROLAEMIA
     Route: 048
     Dates: start: 20111101, end: 20111103
  21. LOXONIN [Concomitant]
     Route: 048
     Dates: start: 20111102, end: 20111102
  22. YUCION-S [Concomitant]
     Indication: MYOCARDIAL INFARCTION
     Route: 042
     Dates: start: 20111103, end: 20111103
  23. PLACEBO [Suspect]
     Indication: ACUTE CORONARY SYNDROME
     Route: 048
     Dates: start: 20111101
  24. NOR-ADRENALIN [Concomitant]
     Route: 042
     Dates: start: 20111102, end: 20111102
  25. CARBOCAIN [Concomitant]
     Indication: PERCUTANEOUS CORONARY INTERVENTION
     Dosage: 1 A DAILY
     Route: 042
     Dates: start: 20111101, end: 20111101
  26. SOLYUGEN F [Concomitant]
     Indication: PERCUTANEOUS CORONARY INTERVENTION
     Route: 042
     Dates: start: 20111101, end: 20111101
  27. PRIMPERAN TAB [Concomitant]
     Indication: PERCUTANEOUS CORONARY INTERVENTION
     Route: 042
     Dates: start: 20111101, end: 20111101
  28. DOPAMINE HCL [Concomitant]
     Route: 042
     Dates: start: 20111104, end: 20111104
  29. PRIMPERAN TAB [Concomitant]
     Dosage: 1 A DAILY
     Route: 042
     Dates: start: 20111102, end: 20111102
  30. DOPAMINE HCL [Concomitant]
     Indication: PERCUTANEOUS CORONARY INTERVENTION
     Route: 042
     Dates: start: 20111101, end: 20111101
  31. NITROGLYCERIN [Concomitant]
     Indication: ACUTE CORONARY SYNDROME
     Route: 060
     Dates: start: 20111101, end: 20111101

REACTIONS (1)
  - ACUTE MYOCARDIAL INFARCTION [None]
